FAERS Safety Report 13170415 (Version 5)
Quarter: 2017Q2

REPORT INFORMATION
  Report Type: Spontaneous
  Country: DE (occurrence: DE)
  Receive Date: 20170131
  Receipt Date: 20170523
  Transmission Date: 20170830
  Serious: Yes (Death, Other)
  Sender: FDA-Public Use
  Company Number: DE-PFIZER INC-2017037367

PATIENT
  Age: 76 Year
  Sex: Male

DRUGS (1)
  1. RAMIPRIL. [Suspect]
     Active Substance: RAMIPRIL
     Dosage: 5 MG, UNK
     Route: 065

REACTIONS (12)
  - Angioedema [Fatal]
  - Multiple organ dysfunction syndrome [Fatal]
  - Cardiac failure acute [Fatal]
  - Swollen tongue [Fatal]
  - Mydriasis [Fatal]
  - Hypersensitivity [Fatal]
  - Dyspnoea [Fatal]
  - Pharyngeal oedema [Fatal]
  - Tryptase increased [Fatal]
  - Dysphagia [Fatal]
  - Laryngeal oedema [Fatal]
  - Hypoxia [Fatal]

NARRATIVE: CASE EVENT DATE: 20170110
